FAERS Safety Report 6482917-X (Version None)
Quarter: 2009Q4

REPORT INFORMATION
  Report Type: 
  Country: None (occurrence: None)
  Receive Date: 20091204
  Receipt Date: 20091124
  Transmission Date: 20100525
  Serious: Yes (Other)
  Sender: FDA-Public Use
  Company Number: 2009CD0133FU2

PATIENT
  Age: 4 Year
  Sex: Male

DRUGS (3)
  1. CEDAX [Suspect]
     Indication: RESPIRATORY TRACT INFECTION
     Dosage: 153MG GRANULES
     Dates: start: 20081015, end: 20081015
  2. LISOMUCIL (CARBOCISTEIN) [Concomitant]
  3. TACHIPIRINE (PARACETAMOL) [Concomitant]

REACTIONS (2)
  - LIP OEDEMA [None]
  - OEDEMA PERIPHERAL [None]
